FAERS Safety Report 16869495 (Version 4)
Quarter: 2019Q4

REPORT INFORMATION
  Report Type: Spontaneous
  Country: US (occurrence: US)
  Receive Date: 20190930
  Receipt Date: 20191230
  Transmission Date: 20200122
  Serious: No
  Sender: FDA-Public Use
  Company Number: US-ASTRAZENECA-2019SF37373

PATIENT
  Sex: Female
  Weight: 40.8 kg

DRUGS (4)
  1. LEVOTHYROXINE. [Concomitant]
     Active Substance: LEVOTHYROXINE
     Indication: THYROID DISORDER
  2. ZOFRAN [Concomitant]
     Active Substance: ONDANSETRON HYDROCHLORIDE
     Dosage: 0.5DF UNKNOWN
     Route: 065
  3. ZOFRAN [Concomitant]
     Active Substance: ONDANSETRON HYDROCHLORIDE
     Dosage: 1.0DF UNKNOWN
     Route: 065
  4. LYNPARZA [Suspect]
     Active Substance: OLAPARIB
     Indication: OVARIAN CANCER
     Route: 048
     Dates: start: 20190728

REACTIONS (7)
  - Fatigue [Unknown]
  - Nausea [Recovered/Resolved]
  - Product colour issue [Unknown]
  - Carbohydrate antigen 125 increased [Unknown]
  - Vomiting [Unknown]
  - Blood magnesium decreased [Unknown]
  - Lung disorder [Unknown]
